FAERS Safety Report 8854180 (Version 1)
Quarter: 2012Q4

REPORT INFORMATION
  Report Type: Report from Study
  Country: US (occurrence: US)
  Receive Date: 20121022
  Receipt Date: 20121022
  Transmission Date: 20130627
  Serious: Yes (Other)
  Sender: FDA-Public Use
  Company Number: US-ABBOTT-12P-163-0996721-00

PATIENT
  Age: 56 Year
  Sex: Female

DRUGS (3)
  1. HUMIRA [Suspect]
     Indication: CROHN^S DISEASE
     Dosage: Loading dose (day 1, as directed)
     Route: 058
     Dates: start: 201208, end: 201208
  2. HUMIRA [Suspect]
     Dosage: Day 15, as directed
     Route: 058
     Dates: start: 201209, end: 201209
  3. FLAGYL [Suspect]
     Indication: PRODUCT USED FOR UNKNOWN INDICATION

REACTIONS (4)
  - Dyspnoea [Unknown]
  - Anaphylactic reaction [Unknown]
  - Injection site vesicles [Unknown]
  - Pulmonary oedema [Unknown]
